FAERS Safety Report 8886920 (Version 2)
Quarter: 2012Q4

REPORT INFORMATION
  Report Type: Report from Study
  Country: CA (occurrence: CA)
  Receive Date: 20121105
  Receipt Date: 20121112
  Transmission Date: 20130627
  Serious: No
  Sender: FDA-Public Use
  Company Number: CA-GENZYME-CAMP-1002499

PATIENT
  Age: 46 Year
  Sex: Female
  Weight: 71.16 kg

DRUGS (5)
  1. ALEMTUZUMAB [Suspect]
     Indication: MULTIPLE SCLEROSIS
     Dosage: 12 mg, qd
     Route: 042
     Dates: start: 20111031, end: 20111104
  2. REBIF [Concomitant]
     Indication: MULTIPLE SCLEROSIS
     Dosage: 44 mcg, 3x/w, uptitrated from 8.8mcg to 44mcg
     Route: 058
     Dates: start: 20090901, end: 20110912
  3. METHYLPREDNISOLONE [Concomitant]
     Indication: MULTIPLE SCLEROSIS
     Dosage: 1 g, qd
     Route: 042
     Dates: start: 20090901, end: 20090903
  4. METHYLPREDNISOLONE [Concomitant]
     Indication: MULTIPLE SCLEROSIS
     Dosage: 1 g, qd
     Route: 042
     Dates: start: 20100824, end: 20100826
  5. METHYLPREDNISOLONE [Concomitant]
     Indication: MULTIPLE SCLEROSIS
     Dosage: 1 g, qd
     Route: 042
     Dates: start: 20111031, end: 20111102

REACTIONS (1)
  - Malignant melanoma in situ [Not Recovered/Not Resolved]
